FAERS Safety Report 17851912 (Version 1)
Quarter: 2020Q2

REPORT INFORMATION
  Report Type: Spontaneous
  Country: GB (occurrence: GB)
  Receive Date: 20200602
  Receipt Date: 20200602
  Transmission Date: 20200714
  Serious: Yes (Life-Threatening, Other)
  Sender: FDA-Public Use
  Company Number: GB-LEO PHARMA-329866

PATIENT
  Sex: Female

DRUGS (1)
  1. PICATO [Suspect]
     Active Substance: INGENOL MEBUTATE
     Indication: ACTINIC KERATOSIS
     Dosage: 150MCG/G ONCE DAILY
     Route: 061
     Dates: start: 20190314, end: 20190316

REACTIONS (4)
  - Application site pain [Unknown]
  - Condition aggravated [Unknown]
  - Skin cancer [Unknown]
  - Psychological trauma [Unknown]

NARRATIVE: CASE EVENT DATE: 20200217
